FAERS Safety Report 17519870 (Version 1)
Quarter: 2020Q1

REPORT INFORMATION
  Report Type: Spontaneous
  Country: US (occurrence: US)
  Receive Date: 20200309
  Receipt Date: 20200309
  Transmission Date: 20200409
  Serious: Yes (Life-Threatening)
  Sender: FDA-Public Use
  Company Number: None

PATIENT
  Age: 36 Year
  Sex: Female
  Weight: 119.25 kg

DRUGS (1)
  1. CEFDINIR. [Suspect]
     Active Substance: CEFDINIR
     Indication: URINARY TRACT INFECTION
     Route: 048
     Dates: start: 20200227, end: 20200304

REACTIONS (9)
  - Pruritus [None]
  - Joint stiffness [None]
  - Lip swelling [None]
  - Hypersensitivity [None]
  - Urticaria [None]
  - Heart rate increased [None]
  - Rash macular [None]
  - Peripheral swelling [None]
  - Swollen tongue [None]

NARRATIVE: CASE EVENT DATE: 20200306
